FAERS Safety Report 11965655 (Version 1)
Quarter: 2016Q1

REPORT INFORMATION
  Report Type: Spontaneous
  Country: US (occurrence: US)
  Receive Date: 20160127
  Receipt Date: 20160127
  Transmission Date: 20160526
  Serious: Yes (Hospitalization)
  Sender: FDA-Public Use
  Company Number: US-BAYER-2016-010813

PATIENT
  Age: 46 Year
  Sex: Female
  Weight: 122.45 kg

DRUGS (1)
  1. MIRALAX [Suspect]
     Active Substance: POLYETHYLENE GLYCOL 3350
     Indication: LAXATIVE SUPPORTIVE CARE
     Dosage: UNK, QD
     Dates: start: 20151218, end: 20160116

REACTIONS (7)
  - Product difficult to swallow [None]
  - Abdominal distension [None]
  - Tension headache [None]
  - Dehydration [None]
  - Abdominal pain [None]
  - Muscle spasms [None]
  - Fluid retention [None]

NARRATIVE: CASE EVENT DATE: 20160101
